FAERS Safety Report 13973443 (Version 2)
Quarter: 2017Q4

REPORT INFORMATION
  Report Type: Spontaneous
  Country: PL (occurrence: PL)
  Receive Date: 20170915
  Receipt Date: 20171024
  Transmission Date: 20180321
  Serious: Yes (Death)
  Sender: FDA-Public Use
  Company Number: PL-ORION CORPORATION ORION PHARMA-17_00002606

PATIENT
  Age: 78 Year
  Sex: Male

DRUGS (5)
  1. METHOTREXATE (TRADE NAME UNKNOWN) [Suspect]
     Active Substance: METHOTREXATE
     Indication: RHEUMATOID ARTHRITIS
     Route: 048
     Dates: start: 20170425, end: 20170605
  2. MILURIT [Suspect]
     Active Substance: ALLOPURINOL
     Indication: HYPERURICAEMIA
     Route: 048
     Dates: start: 20170425, end: 20170605
  3. BIOTRAKSON [Suspect]
     Active Substance: CEFTRIAXONE SODIUM
     Indication: PYREXIA
     Route: 042
     Dates: start: 20170525, end: 20170605
  4. METYPRED [Suspect]
     Active Substance: METHYLPREDNISOLONE
     Indication: RHEUMATOID ARTHRITIS
     Route: 048
     Dates: start: 20170425, end: 20170605
  5. METRONIDAZOL [Suspect]
     Active Substance: METRONIDAZOLE
     Indication: STOMATITIS
     Route: 042
     Dates: start: 20170527, end: 20170605

REACTIONS (3)
  - Bone marrow failure [Fatal]
  - Mucosal inflammation [Not Recovered/Not Resolved]
  - Aplastic anaemia [Fatal]

NARRATIVE: CASE EVENT DATE: 20170601
